FAERS Safety Report 12094784 (Version 1)
Quarter: 2016Q1

REPORT INFORMATION
  Report Type: Spontaneous
  Country: CA (occurrence: None)
  Receive Date: 20160219
  Receipt Date: 20160219
  Transmission Date: 20160526
  Serious: Yes (Other)
  Sender: FDA-Public Use
  Company Number: ADR-2008-4496

PATIENT
  Sex: Male

DRUGS (1)
  1. BACLOFEN INTRATHECAL 500MCG/ML [Suspect]
     Active Substance: BACLOFEN
     Indication: MUSCLE SPASTICITY
     Dosage: 70.7 MCG/DAY

REACTIONS (19)
  - Muscle spasticity [None]
  - Limb discomfort [None]
  - Therapeutic response decreased [None]
  - Overdose [None]
  - Gait disturbance [None]
  - Drug withdrawal syndrome [None]
  - Chills [None]
  - Muscular weakness [None]
  - Muscle spasms [None]
  - Somnolence [None]
  - Electric shock [None]
  - Cerebrospinal fluid leakage [None]
  - Headache [None]
  - Piloerection [None]
  - Fatigue [None]
  - Pruritus [None]
  - Bladder spasm [None]
  - Hypotonia [None]
  - Urinary incontinence [None]
